FAERS Safety Report 10175687 (Version 2)
Quarter: 2014Q2

REPORT INFORMATION
  Report Type: Spontaneous
  Country: CA (occurrence: CA)
  Receive Date: 20140516
  Receipt Date: 20140516
  Transmission Date: 20141212
  Serious: Yes (Other)
  Sender: FDA-Public Use
  Company Number: CA-ROCHE-1397863

PATIENT
  Age: 55 Year
  Sex: Female

DRUGS (4)
  1. XOLAIR [Suspect]
     Indication: URTICARIA
     Route: 058
     Dates: start: 20131204
  2. XOLAIR [Suspect]
     Route: 058
     Dates: start: 20140108
  3. PREDNISONE [Suspect]
     Indication: PRODUCT USED FOR UNKNOWN INDICATION
     Route: 065
  4. PREDNISONE [Suspect]
     Route: 065

REACTIONS (6)
  - Glaucoma [Unknown]
  - Urticaria [Unknown]
  - Rhinorrhoea [Unknown]
  - Dry mouth [Recovered/Resolved]
  - Sinus congestion [Unknown]
  - Off label use [Unknown]
